FAERS Safety Report 23133513 (Version 1)
Quarter: 2023Q4

REPORT INFORMATION
  Report Type: Spontaneous
  Country: MY (occurrence: MY)
  Receive Date: 20231101
  Receipt Date: 20231101
  Transmission Date: 20240110
  Serious: Yes (Life-Threatening, Other)
  Sender: FDA-Public Use
  Company Number: MY-MACLEODS PHARMACEUTICALS US LTD-MAC2019020685

PATIENT

DRUGS (22)
  1. LEVOFLOXACIN [Suspect]
     Active Substance: LEVOFLOXACIN
     Indication: Mycobacterial infection
     Dosage: 750 MILLIGRAM, QD
     Route: 048
     Dates: start: 2017, end: 2017
  2. LEVOFLOXACIN [Suspect]
     Active Substance: LEVOFLOXACIN
     Indication: Mycobacterial infection
     Dosage: 500 MILLIGRAM, QD, MDR-TB SHORT REGIMEN
     Route: 048
     Dates: start: 201705, end: 201705
  3. ETHIONAMIDE [Suspect]
     Active Substance: ETHIONAMIDE
     Indication: Pulmonary tuberculosis
     Dosage: 250 MILLIGRAM, BID, MDR-TB SHORT REGIMEN
     Route: 048
     Dates: start: 201705, end: 201705
  4. ETHIONAMIDE [Suspect]
     Active Substance: ETHIONAMIDE
     Indication: Mycobacterial infection
  5. RIFAMPIN [Interacting]
     Active Substance: RIFAMPIN
     Indication: Pulmonary tuberculosis
     Dosage: 150 MILLIGRAM
     Route: 065
  6. RIFAMPIN [Interacting]
     Active Substance: RIFAMPIN
     Indication: Mycobacterial infection
  7. GLICLAZIDE [Interacting]
     Active Substance: GLICLAZIDE
     Indication: Type 2 diabetes mellitus
     Dosage: UNK
     Route: 065
  8. ISOPHANE INSULIN [Concomitant]
     Active Substance: INSULIN NOS
     Indication: Type 2 diabetes mellitus
     Dosage: 8 INTERNATIONAL UNIT, QD, TYPE 2 DIABETES MELLITUS
     Route: 048
     Dates: start: 201705
  9. Streptomcin [Concomitant]
     Indication: Pulmonary tuberculosis
     Dosage: 250 MILLIGRAM, QD
     Route: 065
  10. Streptomcin [Concomitant]
     Indication: Mycobacterial infection
     Dosage: 500 MILLIGRAM, QD
     Dates: start: 2017
  11. Streptomcin [Concomitant]
     Dosage: 750 UNK
  12. PYRAZINAMIDE [Concomitant]
     Active Substance: PYRAZINAMIDE
     Indication: Pulmonary tuberculosis
     Dosage: 1500 MILLIGRAM, QD, MDR-TB SHORT REGIMEN
     Route: 048
     Dates: start: 201705, end: 201705
  13. PYRAZINAMIDE [Concomitant]
     Active Substance: PYRAZINAMIDE
     Indication: Mycobacterial infection
  14. KANAMYCIN [Concomitant]
     Active Substance: KANAMYCIN A SULFATE
     Indication: Pulmonary tuberculosis
     Dosage: 100 MILLIGRAM, QD
     Route: 030
     Dates: start: 201705, end: 201705
  15. KANAMYCIN [Concomitant]
     Active Substance: KANAMYCIN A SULFATE
     Indication: Mycobacterial infection
  16. ETHAMBUTOL [Concomitant]
     Active Substance: ETHAMBUTOL HYDROCHLORIDE
     Indication: Pulmonary tuberculosis
     Dosage: 1200 MILLIGRAM, QD, MDR-TB SHORT REGIMEN
     Route: 048
     Dates: start: 201705, end: 201705
  17. ETHAMBUTOL [Concomitant]
     Active Substance: ETHAMBUTOL HYDROCHLORIDE
     Indication: Mycobacterial infection
  18. CLOFAZIMINE [Concomitant]
     Active Substance: CLOFAZIMINE
     Indication: Mycobacterial infection
     Dosage: 750 MILLIGRAM, QD, MDR-TB SHORT REGIMEN
     Route: 048
     Dates: start: 201705, end: 201705
  19. CLOFAZIMINE [Concomitant]
     Active Substance: CLOFAZIMINE
     Indication: Pulmonary tuberculosis
  20. ISONIAZID [Concomitant]
     Active Substance: ISONIAZID
     Indication: Pulmonary tuberculosis
     Dosage: 1500 MILLIGRAM, QD, MDR-TB SHORT REGIMEN
     Route: 048
     Dates: start: 201705, end: 201705
  21. ISONIAZID [Concomitant]
     Active Substance: ISONIAZID
     Indication: Mycobacterial infection
  22. ACTRAPID [Concomitant]
     Active Substance: INSULIN HUMAN
     Indication: Type 2 diabetes mellitus
     Dosage: 8 INTERNATIONAL UNIT, TID
     Route: 030
     Dates: start: 201705

REACTIONS (8)
  - Diabetes mellitus inadequate control [Unknown]
  - Angioedema [Recovered/Resolved]
  - Pyrexia [Unknown]
  - Nausea [Unknown]
  - Urticaria [Unknown]
  - Vomiting [Unknown]
  - Drug resistance [Unknown]
  - Drug interaction [Unknown]

NARRATIVE: CASE EVENT DATE: 20170101
